FAERS Safety Report 8269257-3 (Version None)
Quarter: 2012Q1

REPORT INFORMATION
  Report Type: 
  Country: None (occurrence: None)
  Receive Date: 20120327
  Receipt Date: 20090609
  Transmission Date: 20120608
  Serious: Yes (Other)
  Sender: FDA-Public Use
  Company Number: PHEH2009US05924

PATIENT
  Age: 88 Year
  Sex: Male

DRUGS (1)
  1. GLEEVEC [Suspect]
     Indication: MALIGNANT SOFT TISSUE NEOPLASM
     Dosage: 400 MG, QD
     Dates: start: 20090109

REACTIONS (3)
  - HYPOTENSION [None]
  - NAUSEA [None]
  - VOMITING [None]
